FAERS Safety Report 4308847-7 (Version None)
Quarter: 2004Q1

REPORT INFORMATION
  Report Type: 
  Country: None (occurrence: None)
  Receive Date: 20040301
  Receipt Date: 20040301
  Transmission Date: 20041129
  Serious: Yes (Hospitalization)
  Sender: FDA-Public Use
  Company Number: None

PATIENT
  Age: 71 Year
  Sex: Female
  Weight: 97.1 kg

DRUGS (12)
  1. VOLTAREN [Suspect]
     Indication: ARTHRITIS
     Dosage: 75 MG PO BID [AT LEAST 2 YRS/D/C'D PRIOR TO ADM]
     Route: 048
  2. ASPIRIN [Suspect]
     Dosage: 325 MG QD CHRONIC
  3. ZOCOR [Concomitant]
  4. LOPID [Concomitant]
  5. AMOXICILLIN [Concomitant]
  6. FLONASE [Concomitant]
  7. SINGULAIR [Concomitant]
  8. TYLENOL W/ CODEINE NO. 3 [Concomitant]
  9. ADVAIR DISKUS 100/50 [Concomitant]
  10. PRINIVIL [Concomitant]
  11. COMPAZINE [Concomitant]
  12. LOMOTIL [Concomitant]

REACTIONS (12)
  - ABDOMINAL DISTENSION [None]
  - DEHYDRATION [None]
  - DIARRHOEA [None]
  - FAECES DISCOLOURED [None]
  - GASTRIC ULCER [None]
  - HAEMATOCRIT DECREASED [None]
  - HAEMOGLOBIN DECREASED [None]
  - MALAISE [None]
  - NAUSEA [None]
  - OCCULT BLOOD POSITIVE [None]
  - VOMITING [None]
  - WEIGHT DECREASED [None]
